FAERS Safety Report 4677214-9 (Version None)
Quarter: 2005Q2

REPORT INFORMATION
  Report Type: 
  Country: None (occurrence: None)
  Receive Date: 20050526
  Receipt Date: 20050520
  Transmission Date: 20051028
  Serious: Yes (Hospitalization, Other)
  Sender: FDA-Public Use
  Company Number: 2005053492

PATIENT
  Age: 66 Year
  Sex: Female
  Weight: 63.8 kg

DRUGS (8)
  1. AROMASIN [Suspect]
     Indication: BREAST CANCER
     Dosage: 25 MG (25 MG, DAILY), ORAL
     Route: 048
  2. INEXIUM (ESOMEPRAZOLE MAGNESIUM) [Concomitant]
  3. LYSANXIA (PRAZEPAM) [Concomitant]
  4. PREVISCAN (FLUINDIONE) [Concomitant]
  5. DIGOXIN [Concomitant]
  6. BISOPROLOL FUMARATE [Concomitant]
  7. TAHOR (ATORVASTATIN) [Concomitant]
  8. ORELOX (CEFPODOXIME PROXETIL) [Concomitant]

REACTIONS (3)
  - ACTIVITIES OF DAILY LIVING IMPAIRED [None]
  - OEDEMA [None]
  - RESPIRATORY DISORDER [None]
